FAERS Safety Report 16519423 (Version 1)
Quarter: 2019Q3

REPORT INFORMATION
  Report Type: Spontaneous
  Country: US (occurrence: US)
  Receive Date: 20190702
  Receipt Date: 20190702
  Transmission Date: 20191004
  Serious: Yes (Other)
  Sender: FDA-Public Use
  Company Number: US-MATRIXX INITIATIVES, INC.-2070226

PATIENT
  Age: 88 Year
  Sex: Male
  Weight: 104.55 kg

DRUGS (4)
  1. 9 OTHER UNDISCLOSED MEDICATIONS [Concomitant]
  2. COLD-EEZE [Suspect]
     Active Substance: ZINC GLUCONATE
  3. WARFARIN SODIUM. [Concomitant]
     Active Substance: WARFARIN SODIUM
  4. ZICAM COLD REMEDY RAPIDMELTS [Suspect]
     Active Substance: HOMEOPATHICS\ZINC ACETATE ANHYDROUS\ZINC GLUCONATE
     Indication: NASOPHARYNGITIS
     Route: 048
     Dates: start: 20190617, end: 20190617

REACTIONS (1)
  - International normalised ratio increased [None]
